FAERS Safety Report 4284146-7 (Version None)
Quarter: 2004Q1

REPORT INFORMATION
  Report Type: 
  Country: None (occurrence: None)
  Receive Date: 20040203
  Receipt Date: 20030513
  Transmission Date: 20041129
  Serious: Yes (Hospitalization)
  Sender: FDA-Public Use
  Company Number: IT-GLAXOSMITHKLINE-B0299579A

PATIENT
  Age: 27 Year
  Sex: Male

DRUGS (4)
  1. LAMIVUDINE [Suspect]
     Indication: HIV INFECTION
     Route: 065
     Dates: start: 20011003, end: 20020430
  2. STAVUDINE [Suspect]
     Indication: HIV INFECTION
     Route: 065
     Dates: start: 20011003, end: 20020430
  3. NEVIRAPINE [Suspect]
     Indication: HIV INFECTION
     Route: 065
     Dates: start: 20011003, end: 20020430
  4. TRIMETHOPRIM-SULFAMETHOXAZOLE [Concomitant]
     Route: 065
     Dates: start: 20011003

REACTIONS (22)
  - ALANINE AMINOTRANSFERASE INCREASED [None]
  - ANTI-HBC IGG ANTIBODY POSITIVE [None]
  - APHASIA [None]
  - ASPARTATE AMINOTRANSFERASE INCREASED [None]
  - ASTHENIA [None]
  - ATAXIA [None]
  - CHOLESTASIS [None]
  - CHRONIC HEPATITIS [None]
  - ENCEPHALOPATHY [None]
  - EOSINOPHILIA [None]
  - GAMMA-GLUTAMYLTRANSFERASE INCREASED [None]
  - HEPATIC NECROSIS [None]
  - HEPATITIS A ANTIBODY POSITIVE [None]
  - HEPATITIS C VIRUS [None]
  - HEPATOCELLULAR DAMAGE [None]
  - IMMUNE RECONSTITUTION SYNDROME [None]
  - JC VIRUS INFECTION [None]
  - LYMPHOCYTIC INFILTRATION [None]
  - MENTAL IMPAIRMENT [None]
  - MOVEMENT DISORDER [None]
  - PROGRESSIVE MULTIFOCAL LEUKOENCEPHALOPATHY [None]
  - TYPE III IMMUNE COMPLEX MEDIATED REACTION [None]
